FAERS Safety Report 5930547-8 (Version None)
Quarter: 2008Q4

REPORT INFORMATION
  Report Type: 
  Country: None (occurrence: None)
  Receive Date: 20081027
  Receipt Date: 20081015
  Transmission Date: 20090506
  Serious: Yes (Hospitalization, Other)
  Sender: FDA-Public Use
  Company Number: BR-RANBAXY-2008R5-18802

PATIENT

DRUGS (1)
  1. ISOTRETINOINA [Suspect]
     Indication: ACNE
     Dosage: 20 MG, SINGLE
     Route: 048
     Dates: start: 20080901, end: 20081004

REACTIONS (5)
  - ABDOMINAL PAIN [None]
  - GASTRITIS [None]
  - PYREXIA [None]
  - VOMITING [None]
  - WHITE BLOOD CELL DISORDER [None]
